FAERS Safety Report 21387789 (Version 1)
Quarter: 2022Q3

REPORT INFORMATION
  Report Type: Report from Study
  Country: US (occurrence: US)
  Receive Date: 20220928
  Receipt Date: 20220928
  Transmission Date: 20221026
  Serious: Yes (Hospitalization, Other)
  Sender: FDA-Public Use
  Company Number: US-GILEAD-2022-0599201

PATIENT
  Age: 38 Year
  Sex: Female

DRUGS (19)
  1. AZTREONAM LYSINE [Suspect]
     Active Substance: AZTREONAM LYSINE
     Indication: Lung transplant
     Dosage: 75 MG, TID
     Route: 055
     Dates: start: 20180901
  2. ACYCLOVIR ABBOTT VIAL [Concomitant]
  3. ALPRAZOLAM [Concomitant]
     Active Substance: ALPRAZOLAM
  4. AMLODIPINE [Concomitant]
     Active Substance: AMLODIPINE BESYLATE
  5. VITAMIN D3 [Concomitant]
     Active Substance: CHOLECALCIFEROL
  6. AMPHOTERICIN B [Concomitant]
     Active Substance: AMPHOTERICIN B
  7. AZITHROMYCIN [Concomitant]
     Active Substance: AZITHROMYCIN
  8. FAMOTIDINE [Concomitant]
     Active Substance: FAMOTIDINE
  9. FERROUS SULFATE [Concomitant]
     Active Substance: FERROUS SULFATE
  10. LOKELMA [Concomitant]
     Active Substance: SODIUM ZIRCONIUM CYCLOSILICATE
  11. LORATADINE [Concomitant]
     Active Substance: LORATADINE
  12. MAGNESIUM [Concomitant]
     Active Substance: MAGNESIUM
  13. MELATONIN [Concomitant]
     Active Substance: MELATONIN
  14. METOPROLIN [Concomitant]
  15. MIRTAZAPINE [Concomitant]
     Active Substance: MIRTAZAPINE
  16. MYCOPHENOLIC ACID [Concomitant]
     Active Substance: MYCOPHENOLIC ACID
  17. PRAVASTATIN [Concomitant]
     Active Substance: PRAVASTATIN
  18. PREDNISONE [Concomitant]
     Active Substance: PREDNISONE
  19. TACROLIMUS [Concomitant]
     Active Substance: TACROLIMUS

REACTIONS (2)
  - Pneumonia [Unknown]
  - Off label use [Not Recovered/Not Resolved]

NARRATIVE: CASE EVENT DATE: 20180901
